FAERS Safety Report 20764856 (Version 2)
Quarter: 2022Q2

REPORT INFORMATION
  Report Type: Report from Study
  Country: JP (occurrence: JP)
  Receive Date: 20220428
  Receipt Date: 20220510
  Transmission Date: 20220721
  Serious: Yes (Hospitalization)
  Sender: FDA-Public Use
  Company Number: JP-TEVA-2022-JP-2030107

PATIENT
  Age: 73 Year
  Sex: Male

DRUGS (6)
  1. PREDNISOLONE [Suspect]
     Active Substance: PREDNISOLONE
     Indication: Scleritis
     Dosage: 30 MILLIGRAM DAILY;
     Route: 048
     Dates: start: 2016
  2. PREDNISOLONE [Suspect]
     Active Substance: PREDNISOLONE
     Dosage: 5 MILLIGRAM DAILY;
     Route: 048
     Dates: start: 2016
  3. TACROLIMUS [Suspect]
     Active Substance: TACROLIMUS
     Indication: Scleritis
     Dosage: QID
     Route: 061
     Dates: start: 2016
  4. TACROLIMUS [Suspect]
     Active Substance: TACROLIMUS
     Dosage: .2 PERCENT DAILY;
     Route: 061
     Dates: start: 201910
  5. BETAMETHASONE [Suspect]
     Active Substance: BETAMETHASONE
     Indication: Scleritis
     Dosage: QID
     Route: 061
     Dates: start: 2016
  6. BETAMETHASONE [Suspect]
     Active Substance: BETAMETHASONE
     Dosage: 6 TIMES A DAY AND THEN TAPERED
     Route: 061
     Dates: start: 2017

REACTIONS (7)
  - Corneal endotheliitis [Recovering/Resolving]
  - Cytomegalovirus infection [Recovered/Resolved]
  - Mydriasis [Unknown]
  - Cataract [Unknown]
  - Glaucoma [Unknown]
  - Diabetic retinopathy [Unknown]
  - Visual field defect [Unknown]

NARRATIVE: CASE EVENT DATE: 20170101
